FAERS Safety Report 21025156 (Version 1)
Quarter: 2022Q2

REPORT INFORMATION
  Report Type: Spontaneous
  Country: US (occurrence: US)
  Receive Date: 20220630
  Receipt Date: 20220630
  Transmission Date: 20220721
  Serious: Yes (Hospitalization, Other)
  Sender: FDA-Public Use
  Company Number: US-SUN PHARMACEUTICAL INDUSTRIES LTD-2022R1-342295

PATIENT
  Age: 2 Year
  Sex: Female

DRUGS (2)
  1. DECITABINE [Suspect]
     Active Substance: DECITABINE
     Indication: Acute myeloid leukaemia
     Dosage: UNK
     Route: 065
  2. VORINOSTAT [Suspect]
     Active Substance: VORINOSTAT
     Indication: Acute myeloid leukaemia
     Dosage: UNK
     Route: 065

REACTIONS (2)
  - Vascular device infection [Unknown]
  - Disease progression [Unknown]
